FAERS Safety Report 8019866-1 (Version None)
Quarter: 2012Q1

REPORT INFORMATION
  Report Type: 
  Country: None (occurrence: None)
  Receive Date: 20120103
  Receipt Date: 20111227
  Transmission Date: 20120608
  Serious: Yes (Other)
  Sender: FDA-Public Use
  Company Number: US-US-EMD SERONO, INC.-7103899

PATIENT
  Sex: Female

DRUGS (1)
  1. REBIF [Suspect]
     Indication: PRODUCT USED FOR UNKNOWN INDICATION
     Route: 058
     Dates: start: 20090929

REACTIONS (4)
  - PAIN IN EXTREMITY [None]
  - MUSCLE TIGHTNESS [None]
  - STRABISMUS [None]
  - MEMORY IMPAIRMENT [None]
